FAERS Safety Report 20817576 (Version 3)
Quarter: 2023Q1

REPORT INFORMATION
  Report Type: Spontaneous
  Country: US (occurrence: US)
  Receive Date: 20220512
  Receipt Date: 20230210
  Transmission Date: 20230418
  Serious: No
  Sender: FDA-Public Use
  Company Number: US-ORGANON-O2205USA000814

PATIENT
  Sex: Female
  Weight: 77.098 kg

DRUGS (1)
  1. NEXPLANON [Suspect]
     Active Substance: ETONOGESTREL
     Indication: Contraception
     Dosage: 1 ROD FOR 3 YEARS, LEFT ARM
     Route: 059
     Dates: start: 20220124

REACTIONS (4)
  - Menstruation delayed [Not Recovered/Not Resolved]
  - Menometrorrhagia [Not Recovered/Not Resolved]
  - Heavy menstrual bleeding [Not Recovered/Not Resolved]
  - Heavy menstrual bleeding [Not Recovered/Not Resolved]

NARRATIVE: CASE EVENT DATE: 20220101
